FAERS Safety Report 7798302-4 (Version None)
Quarter: 2011Q4

REPORT INFORMATION
  Report Type: 
  Country: None (occurrence: None)
  Receive Date: 20111005
  Receipt Date: 20110926
  Transmission Date: 20120403
  Serious: Yes (Life-Threatening, Hospitalization, Disabling)
  Sender: FDA-Public Use
  Company Number: GB-BAYER-2011-093868

PATIENT
  Age: 55 Year
  Sex: Male

DRUGS (5)
  1. NAPROXEN SODIUM [Suspect]
     Indication: BACK PAIN
     Dosage: DAILY DOSE 500 MG
     Route: 048
     Dates: end: 20110911
  2. AMITRIPTYLINE HYDROCHLORIDE [Concomitant]
     Indication: NEURALGIA
     Dosage: 25 MG, QD
  3. CODEINE PHOSPHATE AND ACETAMINOPHEN [Concomitant]
     Indication: BACK PAIN
     Dosage: 1 DF, QID
     Route: 048
  4. BENDROFLUMETHIAZIDE [Concomitant]
     Indication: HYPERTENSION
     Dosage: 25 MG, QD
  5. ATENOLOL [Concomitant]
     Indication: HYPERTENSION
     Dosage: 25 MG, QD
     Route: 048

REACTIONS (2)
  - HAEMOGLOBIN DECREASED [None]
  - UPPER GASTROINTESTINAL HAEMORRHAGE [None]
